FAERS Safety Report 4559412-8 (Version None)
Quarter: 2005Q1

REPORT INFORMATION
  Report Type: 
  Country: None (occurrence: None)
  Receive Date: 20050119
  Receipt Date: 20040107
  Transmission Date: 20050727
  Serious: Yes (Hospitalization)
  Sender: FDA-Public Use
  Company Number: 061-0981-990324

PATIENT
  Age: 72 Year
  Sex: Male
  Weight: 72.5 kg

DRUGS (2)
  1. ATORVASTATIN (ATORVASTATIN) [Suspect]
     Indication: HYPERLIPIDAEMIA
     Dosage: 10 MG (1 IN 1 D ORAL)
     Route: 048
     Dates: start: 19990429
  2. ASPIRIN [Concomitant]

REACTIONS (4)
  - ABDOMINAL PAIN UPPER [None]
  - ANGINA UNSTABLE [None]
  - AORTIC ANEURYSM [None]
  - CONDITION AGGRAVATED [None]
